FAERS Safety Report 7070129-0 (Version None)
Quarter: 2010Q4

REPORT INFORMATION
  Report Type: 
  Country: None (occurrence: None)
  Receive Date: 20101028
  Receipt Date: 20100831
  Transmission Date: 20110411
  Serious: No
  Sender: FDA-Public Use
  Company Number: US-WYE-H17286210

PATIENT
  Age: 48 Year
  Sex: Female
  Weight: 59.02 kg

DRUGS (3)
  1. ADVIL [Suspect]
     Indication: PLANTAR FASCIITIS
     Dosage: TWO LIQUI-GELS EVERY FOUR HOURS, TOOK EIGHT TO TEN TOTAL
     Route: 048
     Dates: start: 20100830
  2. ADVIL [Suspect]
     Indication: PAIN
  3. ORAL CONTRACEPTIVE NOS [Concomitant]

REACTIONS (2)
  - ABDOMINAL PAIN UPPER [None]
  - OVERDOSE [None]
